FAERS Safety Report 9017596 (Version 1)
Quarter: 2013Q1

REPORT INFORMATION
  Report Type: Spontaneous
  Country: CA (occurrence: CA)
  Receive Date: 20130117
  Receipt Date: 20130117
  Transmission Date: 20140127
  Serious: Yes (Other)
  Sender: FDA-Public Use
  Company Number: CA-BIOMARINP-002928

PATIENT
  Age: 11 Year
  Sex: Male
  Weight: 29.3 kg

DRUGS (1)
  1. KUVAN [Suspect]
     Indication: PHENYLKETONURIA
     Dosage: 600MG,QD
     Route: 048
     Dates: start: 20120702

REACTIONS (6)
  - Nephritis [Recovered/Resolved]
  - Renal disorder [Recovered/Resolved]
  - Headache [Recovered/Resolved]
  - Pyrexia [Recovered/Resolved]
  - Lethargy [Recovered/Resolved]
  - Chromaturia [Recovered/Resolved]
